FAERS Safety Report 4538811-4 (Version None)
Quarter: 2004Q4

REPORT INFORMATION
  Report Type: 
  Country: None (occurrence: None)
  Receive Date: 20041222
  Receipt Date: 20041201
  Transmission Date: 20050328
  Serious: Yes (Other)
  Sender: FDA-Public Use
  Company Number: USA041184194

PATIENT
  Age: 31 Year
  Sex: Female
  Weight: 55 kg

DRUGS (4)
  1. HUMALOG [Suspect]
     Indication: DIABETES MELLITUS
     Dates: start: 20030101
  2. HUMULIN N [Suspect]
     Indication: DIABETES MELLITUS
     Dates: start: 19840101
  3. HUMULIN R [Suspect]
     Indication: DIABETES MELLITUS
     Dates: start: 19840101
  4. LANTUS [Concomitant]

REACTIONS (14)
  - BLOOD PRESSURE FLUCTUATION [None]
  - DIARRHOEA [None]
  - DIZZINESS [None]
  - DRY MOUTH [None]
  - DYSPNOEA [None]
  - HEART RATE IRREGULAR [None]
  - MULTIPLE ALLERGIES [None]
  - PANIC ATTACK [None]
  - PHARMACEUTICAL PRODUCT COMPLAINT [None]
  - SEASONAL ALLERGY [None]
  - THROAT TIGHTNESS [None]
  - TREATMENT NONCOMPLIANCE [None]
  - TREMOR [None]
  - URINE KETONE BODY [None]
